FAERS Safety Report 9323658 (Version 2)
Quarter: 2013Q2

REPORT INFORMATION
  Report Type: Spontaneous
  Country: BR (occurrence: BR)
  Receive Date: 20130603
  Receipt Date: 20130621
  Transmission Date: 20140414
  Serious: Yes (Other)
  Sender: FDA-Public Use
  Company Number: PHHY2013BR052928

PATIENT
  Sex: Male
  Weight: 39 kg

DRUGS (15)
  1. RITALINA [Suspect]
     Indication: ATTENTION DEFICIT/HYPERACTIVITY DISORDER
     Dosage: 2.5 DF, DAILY (1AND HALF TABLET IN MORNING AND 1 TABLET IN AFTERNOON)
     Route: 048
  2. RITALINA [Suspect]
     Dosage: 1 DF, DAILY
     Route: 048
  3. RITALINA [Suspect]
     Dosage: 1.5 DF, DAILY (1 AND HALF TABLET DAILY)
     Route: 048
  4. RITALINA [Suspect]
     Dosage: 2 DF, DAILY
     Route: 048
  5. RITALINA [Suspect]
     Dosage: 2.5 DF, DAILY
     Route: 048
  6. RITALINA [Suspect]
     Dosage: 3 DF, DAILY
     Route: 048
  7. RITALINA [Suspect]
     Dosage: 3.5 DF, DAILY
     Route: 048
  8. RITALINA [Suspect]
     Dosage: 4 DF, DAILY
     Route: 048
  9. RITALINA [Suspect]
     Dosage: 4.5 DF, DAILY
     Route: 048
  10. RITALINA [Suspect]
     Dosage: 5 DF, DAILY
     Route: 048
  11. RITALINA [Suspect]
     Dosage: 5.5 DF, DAILY
     Route: 048
  12. RITALINA [Suspect]
     Dosage: 6 DF, DAILY
     Route: 048
  13. RITALINA [Suspect]
     Dosage: 6.5 DF, DAILY
     Route: 048
  14. RITALINA [Suspect]
     Dosage: 7 DF, DAILY
     Route: 048
  15. RITALINA [Suspect]
     Dosage: 2 DF, DAILY
     Route: 048

REACTIONS (8)
  - Bipolar disorder [Recovered/Resolved]
  - Aggression [Recovered/Resolved]
  - Memory impairment [Not Recovered/Not Resolved]
  - Impulsive behaviour [Not Recovered/Not Resolved]
  - Increased appetite [Not Recovered/Not Resolved]
  - Energy increased [Not Recovered/Not Resolved]
  - Agitation [Not Recovered/Not Resolved]
  - Hypersomnia [Recovered/Resolved]
